FAERS Safety Report 4450991-8 (Version None)
Quarter: 2004Q3

REPORT INFORMATION
  Report Type: 
  Country: None (occurrence: None)
  Receive Date: 20040916
  Receipt Date: 20040312
  Transmission Date: 20050211
  Serious: No
  Sender: FDA-Public Use
  Company Number: US-BRISTOL-MYERS SQUIBB COMPANY-12531919

PATIENT
  Age: 47 Year
  Sex: Female
  Weight: 99 kg

DRUGS (4)
  1. STADOL [Suspect]
     Route: 045
  2. VICODIN [Concomitant]
     Indication: MIGRAINE
  3. TOPAMAX [Concomitant]
  4. DEPAKOTE [Concomitant]

REACTIONS (1)
  - DRUG INEFFECTIVE [None]
